FAERS Safety Report 7313179-9 (Version None)
Quarter: 2011Q1

REPORT INFORMATION
  Report Type: 
  Country: None (occurrence: None)
  Receive Date: 20110215
  Receipt Date: 20110215
  Transmission Date: 20110831
  Serious: Yes (Hospitalization)
  Sender: FDA-Public Use
  Company Number: None

PATIENT
  Age: 75 Year
  Sex: Female
  Weight: 88 kg

DRUGS (13)
  1. DIGOXIN [Concomitant]
  2. METFORMIN [Concomitant]
  3. XALATAN [Concomitant]
  4. ASA [Concomitant]
  5. LOSARTAN POTASSIUM [Concomitant]
  6. DILTIAZEM [Concomitant]
  7. PRADEXA [Concomitant]
  8. PROLOSEC [Concomitant]
  9. EXELON [Concomitant]
  10. VIT D [Concomitant]
  11. SEROQUEL [Concomitant]
  12. SEPTRA [Suspect]
     Indication: URINARY TRACT INFECTION
     Dosage: PO
     Route: 048
  13. M.V.I. [Concomitant]

REACTIONS (1)
  - RASH ERYTHEMATOUS [None]
